FAERS Safety Report 6594186-0 (Version None)
Quarter: 2010Q1

REPORT INFORMATION
  Report Type: 
  Country: None (occurrence: None)
  Receive Date: 20100222
  Receipt Date: 20100205
  Transmission Date: 20100710
  Serious: Yes (Hospitalization)
  Sender: FDA-Public Use
  Company Number: JP-SANOFI-AVENTIS-F01200900982

PATIENT
  Age: 66 Year
  Sex: Female
  Weight: 38 kg

DRUGS (12)
  1. CLOPIDOGREL BISULFATE [Suspect]
     Route: 048
     Dates: start: 20071126, end: 20071212
  2. CLOPIDOGREL BISULFATE [Suspect]
     Route: 048
     Dates: start: 20071213
  3. RIMATIL [Concomitant]
     Route: 048
     Dates: end: 20080904
  4. PREDNISOLONE [Concomitant]
     Route: 048
  5. SOLANAX [Concomitant]
     Route: 048
  6. BONALON [Concomitant]
     Route: 048
  7. HYPEN [Concomitant]
     Route: 048
  8. NEUROTROPIN [Concomitant]
     Dosage: DOSE:4 UNIT(S)
     Route: 048
  9. AZULFIDINE [Concomitant]
     Route: 048
  10. MECOBALAMIN [Concomitant]
     Route: 048
  11. AMOXAN [Concomitant]
     Route: 048
     Dates: start: 20071228, end: 20090904
  12. CLARITHROMYCIN [Concomitant]
     Route: 048

REACTIONS (1)
  - CELLULITIS [None]
